FAERS Safety Report 21311191 (Version 1)
Quarter: 2022Q3

REPORT INFORMATION
  Report Type: Spontaneous
  Country: US (occurrence: None)
  Receive Date: 20220909
  Receipt Date: 20220909
  Transmission Date: 20221026
  Serious: No
  Sender: FDA-Public Use
  Company Number: US-ARIS GLOBAL-202202-0235

PATIENT
  Age: 59 Year
  Sex: Female

DRUGS (6)
  1. OXERVATE [Suspect]
     Active Substance: CENEGERMIN-BKBJ
     Indication: Neurotrophic keratopathy
     Route: 047
     Dates: start: 20220124
  2. MURO-128 [Concomitant]
  3. XIIDRA [Concomitant]
     Active Substance: LIFITEGRAST
  4. SYSTANE HYDRATION PF [Concomitant]
  5. METFORMIN ER GASTRIC [Concomitant]
  6. GLIPIZIDE [Concomitant]
     Active Substance: GLIPIZIDE

REACTIONS (5)
  - Eye irritation [Unknown]
  - Blepharospasm [Recovered/Resolved]
  - Product administration error [Unknown]
  - Accidental overdose [Unknown]
  - Photophobia [Unknown]

NARRATIVE: CASE EVENT DATE: 20220127
